FAERS Safety Report 4753090-0 (Version None)
Quarter: 2005Q3

REPORT INFORMATION
  Report Type: 
  Country: None (occurrence: None)
  Receive Date: 20050826
  Receipt Date: 20050407
  Transmission Date: 20060218
  Serious: Yes (Hospitalization, Disabling)
  Sender: FDA-Public Use
  Company Number: US-MERCK-0504USA00994

PATIENT
  Age: 63 Year
  Sex: Male
  Weight: 87 kg

DRUGS (17)
  1. VIOXX [Suspect]
     Indication: BACK PAIN
     Route: 048
     Dates: start: 20010414, end: 20010501
  2. VIOXX [Suspect]
     Route: 048
     Dates: start: 20020225, end: 20020301
  3. VIOXX [Suspect]
     Route: 048
     Dates: start: 20020619, end: 20040601
  4. VIOXX [Suspect]
     Indication: RHEUMATOID ARTHRITIS
     Route: 048
     Dates: start: 20010414, end: 20010501
  5. VIOXX [Suspect]
     Route: 048
     Dates: start: 20020225, end: 20020301
  6. VIOXX [Suspect]
     Route: 048
     Dates: start: 20020619, end: 20040601
  7. DARVOCET-N 100 [Concomitant]
     Indication: PAIN
     Route: 048
     Dates: start: 20010108
  8. SYNTHROID [Concomitant]
     Route: 065
  9. ALTACE [Concomitant]
     Route: 065
  10. CYANOCOBALAMIN [Concomitant]
     Route: 030
  11. ATROVENT [Concomitant]
     Indication: CHRONIC OBSTRUCTIVE PULMONARY DISEASE
     Route: 055
  12. LEVOTHROID [Concomitant]
     Indication: HYPOTHYROIDISM
     Route: 065
  13. AZMACORT [Concomitant]
     Indication: CHRONIC OBSTRUCTIVE PULMONARY DISEASE
     Route: 055
  14. PROVENTIL [Concomitant]
     Route: 065
  15. ACTONEL [Concomitant]
     Route: 065
  16. PREVACID [Concomitant]
     Indication: GASTROOESOPHAGEAL REFLUX DISEASE
     Route: 065
  17. PROPULSID [Concomitant]
     Route: 065

REACTIONS (10)
  - ANGINA UNSTABLE [None]
  - ARTHROPATHY [None]
  - ASTHMA [None]
  - BLOOD CHOLESTEROL INCREASED [None]
  - DEHYDRATION [None]
  - DEPRESSION [None]
  - FOOT FRACTURE [None]
  - HYPERTENSION [None]
  - MYOCARDIAL INFARCTION [None]
  - ROAD TRAFFIC ACCIDENT [None]
